FAERS Safety Report 14567363 (Version 1)
Quarter: 2018Q1

REPORT INFORMATION
  Report Type: Report from Study
  Country: IT (occurrence: IT)
  Receive Date: 20180223
  Receipt Date: 20180223
  Transmission Date: 20180509
  Serious: Yes (Other)
  Sender: FDA-Public Use
  Company Number: IT-GILEAD-2017-0258356

PATIENT
  Age: 55 Year
  Sex: Male

DRUGS (11)
  1. RABEPRAZOL [Concomitant]
     Active Substance: RABEPRAZOLE
  2. QUETIAPINE. [Concomitant]
     Active Substance: QUETIAPINE
  3. ACETYLSALICYLIC ACID [Concomitant]
     Active Substance: ASPIRIN
  4. EMTRICITABINE/TENOFOVIR ALAFENAMIDE [Suspect]
     Active Substance: EMTRICITABINE\TENOFOVIR
     Indication: HIV INFECTION
     Dosage: UNK
     Route: 065
     Dates: start: 20161222
  5. LANTUS [Concomitant]
     Active Substance: INSULIN GLARGINE
  6. KETOPROFEN. [Concomitant]
     Active Substance: KETOPROFEN
  7. AMOXICILLIN. [Suspect]
     Active Substance: AMOXICILLIN
     Indication: PRODUCT USED FOR UNKNOWN INDICATION
     Route: 065
  8. FLURAZEPAM [Concomitant]
     Active Substance: FLURAZEPAM\FLURAZEPAM HYDROCHLORIDE
  9. INSULIN [Concomitant]
     Active Substance: INSULIN NOS
  10. DEPAKIN [Concomitant]
     Active Substance: VALPROATE SODIUM
  11. SERTRALINE [Concomitant]
     Active Substance: SERTRALINE HYDROCHLORIDE

REACTIONS (3)
  - Renal failure [Recovering/Resolving]
  - Humerus fracture [Recovering/Resolving]
  - Renal impairment [Recovered/Resolved]

NARRATIVE: CASE EVENT DATE: 20170120
